FAERS Safety Report 13938217 (Version 2)
Quarter: 2017Q4

REPORT INFORMATION
  Report Type: Spontaneous
  Country: DE (occurrence: DE)
  Receive Date: 20170905
  Receipt Date: 20171013
  Transmission Date: 20180320
  Serious: Yes (Other)
  Sender: FDA-Public Use
  Company Number: DE-ABBVIE-17P-062-2087404-00

PATIENT
  Age: 74 Year
  Sex: Female

DRUGS (1)
  1. VENCLYXTO [Suspect]
     Active Substance: VENETOCLAX
     Indication: CHRONIC LYMPHOCYTIC LEUKAEMIA
     Route: 048
     Dates: start: 201706

REACTIONS (7)
  - Lymphadenopathy [Unknown]
  - Lymphadenopathy [Unknown]
  - Diffuse large B-cell lymphoma [Unknown]
  - General physical health deterioration [Unknown]
  - Chronic lymphocytic leukaemia [Unknown]
  - B-cell lymphoma [Unknown]
  - Richter^s syndrome [Unknown]

NARRATIVE: CASE EVENT DATE: 2017
